FAERS Safety Report 9189513 (Version 2)
Quarter: 2013Q2

REPORT INFORMATION
  Report Type: Spontaneous
  Country: US (occurrence: None)
  Receive Date: 20120702
  Receipt Date: 20130225
  Transmission Date: 20140414
  Serious: Yes (Other)
  Sender: FDA-Public Use
  Company Number: 2011-239

PATIENT
  Age: 38 Year
  Sex: Female

DRUGS (1)
  1. PRIALT [Suspect]
     Route: 037

REACTIONS (5)
  - Unresponsive to stimuli [None]
  - Mental status changes [None]
  - Rash [None]
  - Oedema peripheral [None]
  - Overdose [None]
